FAERS Safety Report 8488614-3 (Version None)
Quarter: 2012Q3

REPORT INFORMATION
  Report Type: 
  Country: None (occurrence: None)
  Receive Date: 20120705
  Receipt Date: 20120628
  Transmission Date: 20120928
  Serious: Yes (Other)
  Sender: FDA-Public Use
  Company Number: PHHY2012US055791

PATIENT
  Age: 60 Year
  Sex: Male

DRUGS (4)
  1. SULFAMETHOXAZOLE AND TRIMETHOPRIM [Concomitant]
     Indication: PROPHYLAXIS AGAINST TRANSPLANT REJECTION
     Dosage: UNK UKN, UNK
  2. CYCLOSPORINE [Suspect]
     Indication: PROPHYLAXIS AGAINST TRANSPLANT REJECTION
     Dosage: UNK UKN, UNK
  3. PREDNISONE [Concomitant]
     Indication: PROPHYLAXIS AGAINST TRANSPLANT REJECTION
     Dosage: UNK UKN, UNK
  4. TACROLIMUS [Concomitant]
     Indication: IMMUNOSUPPRESSION
     Dosage: UNK UKN, UNK

REACTIONS (15)
  - VISUAL ACUITY REDUCED [None]
  - LIVER FUNCTION TEST ABNORMAL [None]
  - CONFUSIONAL STATE [None]
  - PUPILLARY REFLEX IMPAIRED [None]
  - ASPERGILLOSIS [None]
  - TEMPORAL ARTERITIS [None]
  - LIVER TRANSPLANT REJECTION [None]
  - DEFORMITY OF ORBIT [None]
  - OPTIC NEUROPATHY [None]
  - OPTIC NEURITIS [None]
  - GENERAL PHYSICAL HEALTH DETERIORATION [None]
  - MASS [None]
  - ASCITES [None]
  - COLOUR BLINDNESS ACQUIRED [None]
  - HEPATIC FAILURE [None]
